FAERS Safety Report 18620314 (Version 1)
Quarter: 2020Q4

REPORT INFORMATION
  Report Type: Spontaneous
  Country: US (occurrence: US)
  Receive Date: 20201215
  Receipt Date: 20201215
  Transmission Date: 20210114
  Serious: Yes (Other)
  Sender: FDA-Public Use
  Company Number: US-SERVIER-S20012723

PATIENT

DRUGS (10)
  1. TN UNSPECIFIED [Concomitant]
     Indication: NON-HODGKIN^S LYMPHOMA
     Dosage: UNK
     Route: 065
     Dates: start: 20201208, end: 20201208
  2. TN UNSPECIFIED [Concomitant]
     Indication: SEDATION
     Dosage: UNK
     Route: 042
     Dates: start: 20201208, end: 20201208
  3. TN UNSPECIFIED [Concomitant]
     Indication: PREMEDICATION
     Dosage: 10 MG, ONE DOSE
     Route: 048
     Dates: start: 20201208, end: 20201208
  4. ONCASPAR [Suspect]
     Active Substance: PEGASPARGASE
     Indication: NON-HODGKIN^S LYMPHOMA
     Dosage: 2975 IU, ONE DOSE
     Route: 042
     Dates: start: 20201208, end: 20201208
  5. TN UNSPECIFIED [Concomitant]
     Indication: PREMEDICATION
     Dosage: 325 MG, ONE DOSE
     Route: 048
     Dates: start: 20201208, end: 20201208
  6. TN UNSPECIFIED [Concomitant]
     Indication: PREMEDICATION
     Dosage: 30 MG, ONE DOSE
     Route: 042
     Dates: start: 20201208, end: 20201208
  7. TN UNSPECIFIED [Concomitant]
     Indication: PREMEDICATION
     Dosage: 25 MG, ONE DOSE
     Route: 048
     Dates: start: 20201208, end: 20201208
  8. TN UNSPECIFIED [Concomitant]
     Indication: PRODUCT USED FOR UNKNOWN INDICATION
     Dosage: 680 ML, ONE DOSE
     Route: 042
     Dates: start: 20201208, end: 20201208
  9. ONCASPAR [Suspect]
     Active Substance: PEGASPARGASE
     Indication: PRODUCT USE IN UNAPPROVED INDICATION
  10. TN UNSPECIFIED [Concomitant]
     Indication: NON-HODGKIN^S LYMPHOMA
     Dosage: 15 MG, ONE DOSE
     Route: 037
     Dates: start: 20201208, end: 20201208

REACTIONS (1)
  - Hypersensitivity [Recovered/Resolved]

NARRATIVE: CASE EVENT DATE: 20201208
